FAERS Safety Report 5124877-X (Version None)
Quarter: 2006Q4

REPORT INFORMATION
  Report Type: 
  Country: None (occurrence: None)
  Receive Date: 20061011
  Receipt Date: 20060930
  Transmission Date: 20070319
  Serious: Yes (Hospitalization)
  Sender: FDA-Public Use
  Company Number: 2006AP04557

PATIENT
  Sex: Male

DRUGS (1)
  1. PLENDIL [Suspect]
     Indication: HYPERTENSION
     Route: 048
     Dates: start: 20040901, end: 20060928

REACTIONS (2)
  - CYANOSIS [None]
  - OEDEMA PERIPHERAL [None]
